FAERS Safety Report 8126364-3 (Version None)
Quarter: 2012Q1

REPORT INFORMATION
  Report Type: 
  Country: None (occurrence: None)
  Receive Date: 20120209
  Receipt Date: 20120202
  Transmission Date: 20120608
  Serious: Yes (Other)
  Sender: FDA-Public Use
  Company Number: US-ASTRAZENECA-2011SE18028

PATIENT
  Age: 66 Year
  Sex: Female

DRUGS (2)
  1. BUPROPION HCL [Suspect]
     Route: 065
  2. ARIMIDEX [Suspect]
     Route: 048

REACTIONS (4)
  - MEMORY IMPAIRMENT [None]
  - FEELING ABNORMAL [None]
  - HYPOAESTHESIA [None]
  - NEOPLASM MALIGNANT [None]
